FAERS Safety Report 7857938-2 (Version None)
Quarter: 2011Q4

REPORT INFORMATION
  Report Type: 
  Country: None (occurrence: None)
  Receive Date: 20111027
  Receipt Date: 20110228
  Transmission Date: 20120403
  Serious: Yes (Hospitalization, Disabling)
  Sender: FDA-Public Use
  Company Number: ES-BAYER-201021571GPV

PATIENT
  Sex: Male

DRUGS (38)
  1. SORAFENIB (RAF KINASE INHIBITOR) [Suspect]
     Dosage: UNK UNK, BID
     Route: 048
     Dates: start: 20100210, end: 20100223
  2. METFORMIN HCL [Concomitant]
     Indication: DIABETES MELLITUS
     Dosage: 2550 MG, QD
     Route: 048
     Dates: start: 19950101
  3. LEUCOVORIN CALCIUM [Suspect]
     Dosage: 700 TOTAL DOSE
     Route: 042
     Dates: start: 20100310, end: 20100310
  4. FLUOROURACIL [Suspect]
     Dosage: 700 TOTAL DOSE
     Route: 040
     Dates: start: 20100310, end: 20100310
  5. DEXAMETHASONE [Concomitant]
     Dosage: 20 MG, QD
     Dates: start: 20100310, end: 20100310
  6. SORAFENIB (RAF KINASE INHIBITOR) [Suspect]
     Dosage: 400 MG, QD
     Route: 048
     Dates: start: 20100209, end: 20100209
  7. OXALIPLATIN [Suspect]
     Dosage: 120 TOTAL DOSE
     Route: 042
     Dates: start: 20100224, end: 20100224
  8. FLUOROURACIL [Suspect]
     Dosage: 4300.00 TOAL DOSE EVERY TWO WEEKS FOR THREE DAYS
     Route: 041
     Dates: start: 20100118, end: 20100120
  9. FLUOROURACIL [Suspect]
     Dosage: 700TOTAL DOSR
     Route: 040
     Dates: start: 20100209, end: 20100209
  10. FLUOROURACIL [Suspect]
     Dosage: 4300.00 TOTAL DOSE
     Route: 042
     Dates: start: 20100209, end: 20100211
  11. FLUOROURACIL [Suspect]
     Dosage: 4300.00 TOTAL DOSE
     Route: 042
     Dates: start: 20100224, end: 20100226
  12. FLUOROURACIL [Suspect]
     Dosage: 4300.00 TOTAL DOSE
     Route: 042
     Dates: start: 20100310, end: 20100312
  13. INSULIN [INSULIN] [Concomitant]
     Indication: DIABETES MELLITUS
     Dosage: 32 IU, QD
     Dates: start: 20060101
  14. BRIMONIDINE TARTRATE [Concomitant]
     Indication: RETINOPATHY
     Dosage: UNK
     Dates: start: 20100324, end: 20100404
  15. AMILORIDE HYDROCHLORIDE [Concomitant]
  16. ONDANSETRON [Concomitant]
     Dosage: 80 MG, QD
     Dates: start: 20100209, end: 20100209
  17. ONDANSETRON [Concomitant]
     Dosage: 80 MG, QD
     Dates: start: 20100224, end: 20100224
  18. CANDESARTAN CILEXETIL [Concomitant]
     Indication: HYPERTENSION
     Dosage: 16 MG, QD
  19. OXALIPLATIN [Suspect]
     Dosage: 150 TOTAL DOSE
     Route: 042
     Dates: start: 20100209, end: 20100209
  20. LEUCOVORIN CALCIUM [Suspect]
     Indication: COLORECTAL CANCER
     Dosage: 700 TOTAL DOSE
     Route: 042
     Dates: start: 20100118, end: 20100118
  21. LEUCOVORIN CALCIUM [Suspect]
     Dosage: 700 TOTAL DOSE
     Route: 042
     Dates: start: 20100224, end: 20100224
  22. ASPIRIN [Concomitant]
     Indication: HYPERTENSION
     Dosage: 100 MG, QD
     Dates: start: 20060101
  23. CANDESARTAN CILEXETIL [Concomitant]
     Dosage: 100 MG/300 MG
  24. DEXAMETHASONE [Concomitant]
     Dosage: 20 MG, QD
     Dates: start: 20100224, end: 20100224
  25. ONDANSETRON [Concomitant]
     Indication: PREMEDICATION
     Dosage: 80 MG, QD
     Dates: start: 20100118, end: 20100118
  26. SORAFENIB (RAF KINASE INHIBITOR) [Suspect]
     Dosage: 400 MG, QD
     Route: 048
     Dates: start: 20100224, end: 20100323
  27. INSULIN [INSULIN] [Concomitant]
     Dosage: 36 IU, QD
     Route: 058
     Dates: start: 20100201
  28. DEXAMETHASONE [Concomitant]
     Indication: PREMEDICATION
     Dosage: 20 MG, QD
     Dates: start: 20100118, end: 20100118
  29. SORAFENIB (RAF KINASE INHIBITOR) [Suspect]
     Indication: COLORECTAL CANCER
     Dosage: 400 MG, BID
     Route: 048
     Dates: start: 20100118, end: 20100208
  30. OXALIPLATIN [Suspect]
     Indication: COLORECTAL CANCER
     Dosage: 150
     Route: 042
     Dates: start: 20100118, end: 20100118
  31. OXALIPLATIN [Suspect]
     Dosage: 120 TOTAL DOSE
     Route: 042
     Dates: start: 20100310, end: 20100310
  32. OMEPRAZOLE [Concomitant]
     Indication: PROPHYLAXIS
     Dosage: 20 MG, QD
     Route: 048
     Dates: start: 20100101
  33. TETRAHYDROZOLINE HYDROCHLORIDE [Concomitant]
     Indication: RETINOPATHY
     Dosage: 0.50 MG, QD
     Route: 047
     Dates: start: 20100324
  34. CANDESARTAN CILEXETIL [Concomitant]
     Indication: HYPERTENSION
     Dosage: 850 MG, QD
  35. LEUCOVORIN CALCIUM [Suspect]
     Dosage: 700 TOTAL DOSE
     Route: 042
     Dates: start: 20100209, end: 20100209
  36. FLUOROURACIL [Suspect]
     Indication: COLORECTAL CANCER
     Dosage: 700 TOTAL DOSE
     Route: 040
     Dates: start: 20100118, end: 20100118
  37. FLUOROURACIL [Suspect]
     Dosage: 700 TOTAL DOSE
     Route: 040
     Dates: start: 20100224, end: 20100224
  38. DEXAMETHASONE [Concomitant]
     Dosage: 20 MG, QD
     Dates: start: 20100209, end: 20100209

REACTIONS (7)
  - CEREBRAL ISCHAEMIA [None]
  - DYSAESTHESIA [None]
  - HYPERTENSION [None]
  - MYOCARDIAL ISCHAEMIA [None]
  - HYPERGLYCAEMIA [None]
  - DIARRHOEA [None]
  - DECREASED APPETITE [None]
